FAERS Safety Report 5358181-1 (Version None)
Quarter: 2007Q2

REPORT INFORMATION
  Report Type: 
  Country: None (occurrence: None)
  Receive Date: 20070530
  Receipt Date: 20061120
  Transmission Date: 20071010
  Serious: Yes (Hospitalization, Other)
  Sender: FDA-Public Use
  Company Number: US200605004860

PATIENT
  Age: 45 Year
  Sex: Female
  Weight: 51.7 kg

DRUGS (1)
  1. ZYPREXA [Suspect]
     Indication: DEPRESSION
     Dosage: SEE IMAGE
     Dates: start: 20000401, end: 20040701

REACTIONS (6)
  - CONVULSION [None]
  - DIABETES MELLITUS NON-INSULIN-DEPENDENT [None]
  - DIABETIC COMA [None]
  - HYPERTENSION [None]
  - PRESCRIBED OVERDOSE [None]
  - TARDIVE DYSKINESIA [None]
